FAERS Safety Report 10903205 (Version 1)
Quarter: 2015Q1

REPORT INFORMATION
  Report Type: Spontaneous
  Country: US (occurrence: US)
  Receive Date: 20150311
  Receipt Date: 20150311
  Transmission Date: 20150721
  Serious: No
  Sender: FDA-Public Use
  Company Number: US-TEVA-539540USA

PATIENT
  Age: 33 Year
  Sex: Female

DRUGS (2)
  1. TEMOZOLOMIDE. [Suspect]
     Active Substance: TEMOZOLOMIDE
     Dosage: 180 MILLIGRAM DAILY; AT BEDTIME
     Route: 048
     Dates: start: 20150114
  2. TEMOZOLOMIDE. [Suspect]
     Active Substance: TEMOZOLOMIDE
     Indication: NEOPLASM MALIGNANT
     Dosage: 200 MILLIGRAM DAILY; AT BEDTIME, TAKE ON EMPTY STOMACH 1 HR AFTER ZOFRAN FOR 5 DAYS
     Route: 048
     Dates: start: 20150114

REACTIONS (3)
  - Alopecia [Unknown]
  - Anxiety [Unknown]
  - Insomnia [Unknown]
